FAERS Safety Report 5370180-2 (Version None)
Quarter: 2007Q2

REPORT INFORMATION
  Report Type: 
  Country: None (occurrence: None)
  Receive Date: 20070626
  Receipt Date: 20070606
  Transmission Date: 20071010
  Serious: Yes (Hospitalization)
  Sender: FDA-Public Use
  Company Number: FR-NOVOPROD-263897

PATIENT
  Sex: Female
  Weight: 63 kg

DRUGS (1)
  1. LEVEMIR [Suspect]
     Indication: DRUG USE FOR UNKNOWN INDICATION
     Dosage: 20 IU, BID
     Route: 058
     Dates: end: 20070509

REACTIONS (2)
  - ABORTION SPONTANEOUS [None]
  - PREGNANCY [None]
